FAERS Safety Report 5865295-6 (Version None)
Quarter: 2008Q3

REPORT INFORMATION
  Report Type: 
  Country: None (occurrence: None)
  Receive Date: 20080829
  Receipt Date: 20080730
  Transmission Date: 20090109
  Serious: No
  Sender: FDA-Public Use
  Company Number: US-ABBOTT-08P-163-0466888-00

PATIENT
  Sex: Male
  Weight: 70.37 kg

DRUGS (1)
  1. SIMCOR [Suspect]
     Indication: BLOOD CHOLESTEROL INCREASED
     Dosage: 500/20 MG
     Route: 048
     Dates: start: 20080601

REACTIONS (4)
  - ARTHRALGIA [None]
  - INSOMNIA [None]
  - MYALGIA [None]
  - WHEEZING [None]
